FAERS Safety Report 18612570 (Version 1)
Quarter: 2020Q4

REPORT INFORMATION
  Report Type: Spontaneous
  Country: FR (occurrence: FR)
  Receive Date: 20201214
  Receipt Date: 20201214
  Transmission Date: 20210114
  Serious: Yes (Hospitalization)
  Sender: FDA-Public Use
  Company Number: FR-MYLANLABS-2020M1100857

PATIENT
  Age: 68 Year
  Sex: Female

DRUGS (3)
  1. PREGABALIN. [Suspect]
     Active Substance: PREGABALIN
     Indication: PAIN
     Dosage: 150 MILLIGRAM, QD
     Route: 048
     Dates: start: 20200727, end: 20200824
  2. PREGABALIN. [Suspect]
     Active Substance: PREGABALIN
     Dosage: 300 MILLIGRAM, QD
     Route: 048
     Dates: start: 20200901, end: 20200902
  3. PREGABALIN. [Suspect]
     Active Substance: PREGABALIN
     Dosage: 225 MILLIGRAM, QD
     Route: 048
     Dates: start: 20200824, end: 20200901

REACTIONS (3)
  - Fall [Recovered/Resolved with Sequelae]
  - Confusional state [Recovering/Resolving]
  - Behaviour disorder [Recovering/Resolving]

NARRATIVE: CASE EVENT DATE: 20200817
